FAERS Safety Report 6099073-2 (Version None)
Quarter: 2009Q1

REPORT INFORMATION
  Report Type: 
  Country: None (occurrence: None)
  Receive Date: 20090302
  Receipt Date: 20090225
  Transmission Date: 20090719
  Serious: Yes (Hospitalization)
  Sender: FDA-Public Use
  Company Number: US-BAXTER-2008BH011616

PATIENT
  Age: 6 Year
  Sex: Male
  Weight: 19 kg

DRUGS (20)
  1. ADVATE [Suspect]
     Indication: FACTOR VIII DEFICIENCY
     Route: 042
     Dates: start: 20031020
  2. ADVATE [Suspect]
     Indication: HAEMOPHILIA
     Route: 042
     Dates: start: 20031020
  3. ADVATE [Suspect]
     Route: 042
     Dates: start: 20040121
  4. ADVATE [Suspect]
     Route: 042
     Dates: start: 20040121
  5. ADVATE [Suspect]
     Route: 042
     Dates: start: 20040409
  6. ADVATE [Suspect]
     Route: 042
     Dates: start: 20040409
  7. ADVATE [Suspect]
     Route: 042
     Dates: start: 20040907
  8. ADVATE [Suspect]
     Route: 042
     Dates: start: 20040907
  9. ADVATE [Suspect]
     Route: 042
     Dates: start: 20070901
  10. ADVATE [Suspect]
     Route: 042
     Dates: start: 20070901
  11. ADVATE [Suspect]
     Route: 042
     Dates: start: 20050301
  12. ADVATE [Suspect]
     Route: 042
     Dates: start: 20050301
  13. ADVATE [Suspect]
     Route: 042
     Dates: start: 20060201
  14. ADVATE [Suspect]
     Route: 042
     Dates: start: 20060201
  15. ADVATE [Suspect]
     Route: 042
     Dates: start: 20060601
  16. ADVATE [Suspect]
     Route: 042
     Dates: start: 20060601
  17. ADVATE [Suspect]
     Indication: FACTOR VIII DEFICIENCY
     Route: 042
     Dates: start: 20080110, end: 20080205
  18. ADVATE [Suspect]
     Indication: HAEMOPHILIA
     Route: 042
     Dates: start: 20080110, end: 20080205
  19. ADVATE [Suspect]
     Route: 042
     Dates: start: 20080208
  20. ADVATE [Suspect]
     Route: 042
     Dates: start: 20080208

REACTIONS (3)
  - FACTOR VIII INHIBITION [None]
  - HAEMATOMA [None]
  - INCREASED TENDENCY TO BRUISE [None]
